FAERS Safety Report 23851887 (Version 1)
Quarter: 2024Q2

REPORT INFORMATION
  Report Type: Spontaneous
  Country: JP (occurrence: JP)
  Receive Date: 20240514
  Receipt Date: 20240514
  Transmission Date: 20240716
  Serious: Yes (Hospitalization)
  Sender: FDA-Public Use
  Company Number: JP-CHUGAI-2024015408

PATIENT
  Age: 54 Year
  Sex: Female
  Weight: 45.8 kg

DRUGS (7)
  1. PERJETA [Suspect]
     Active Substance: PERTUZUMAB
     Indication: Colon cancer
     Dosage: 840 MILLIGRAM
     Route: 065
     Dates: start: 20231102, end: 20231102
  2. HERCEPTIN [Suspect]
     Active Substance: TRASTUZUMAB
     Indication: Colon cancer
     Dosage: 368 MILLIGRAM
     Route: 065
     Dates: start: 20231102, end: 20231102
  3. VONOPRAZAN FUMARATE [Concomitant]
     Active Substance: VONOPRAZAN FUMARATE
     Dosage: 20 MILLIGRAM, QD
     Dates: start: 20211025
  4. ELIQUIS [Concomitant]
     Active Substance: APIXABAN
     Dosage: 5 MILLIGRAM, BID
     Dates: start: 20230626
  5. RITAROKS [Concomitant]
     Dosage: 1.2 GRAM, TID
     Dates: start: 20230928
  6. LOXOPROFEN SODIUM [Concomitant]
     Active Substance: LOXOPROFEN SODIUM
     Dosage: 1 DOSAGE FORM, QD
     Dates: start: 20220120, end: 20231102
  7. UREA [Concomitant]
     Active Substance: UREA
     Dosage: UNK, BID
     Dates: start: 20221020, end: 20231102

REACTIONS (1)
  - SJS-TEN overlap [Recovered/Resolved]

NARRATIVE: CASE EVENT DATE: 20231109
